FAERS Safety Report 5815413-0 (Version None)
Quarter: 2008Q3

REPORT INFORMATION
  Report Type: 
  Country: None (occurrence: None)
  Receive Date: 20080718
  Receipt Date: 20080708
  Transmission Date: 20090109
  Serious: Yes (Other)
  Sender: FDA-Public Use
  Company Number: US-PFIZER INC-2008056931

PATIENT
  Sex: Male
  Weight: 103.63 kg

DRUGS (4)
  1. VIAGRA [Suspect]
     Indication: ERECTILE DYSFUNCTION
  2. SYNTHROID [Concomitant]
  3. DIOVAN HCT [Concomitant]
  4. AMBIEN [Concomitant]

REACTIONS (6)
  - BALANCE DISORDER [None]
  - DEAFNESS UNILATERAL [None]
  - DIZZINESS [None]
  - FALL [None]
  - IMMOBILE [None]
  - MALAISE [None]
